FAERS Safety Report 7904147-4 (Version None)
Quarter: 2011Q4

REPORT INFORMATION
  Report Type: 
  Country: None (occurrence: None)
  Receive Date: 20111109
  Receipt Date: 20111103
  Transmission Date: 20120403
  Serious: Yes (Death)
  Sender: FDA-Public Use
  Company Number: CH-PFIZER INC-2011269038

PATIENT
  Age: 71 Year
  Sex: Male

DRUGS (1)
  1. PF-02341066 [Suspect]
     Indication: NON-SMALL CELL LUNG CANCER
     Dosage: UNK

REACTIONS (1)
  - DEATH [None]
